FAERS Safety Report 8077435-1 (Version None)
Quarter: 2012Q1

REPORT INFORMATION
  Report Type: 
  Country: None (occurrence: None)
  Receive Date: 20120127
  Receipt Date: 20120119
  Transmission Date: 20120608
  Serious: Yes (Other)
  Sender: FDA-Public Use
  Company Number: PHEH2012US001761

PATIENT
  Sex: Female
  Weight: 40.816 kg

DRUGS (25)
  1. CALCIUM [Concomitant]
  2. LORATADINE [Concomitant]
  3. AZITHROMYCIN [Concomitant]
  4. MULTI-VITAMINS [Concomitant]
  5. SPIRIVA [Concomitant]
     Dosage: UNK
  6. LEVOTHYROXINE SODIUM [Concomitant]
  7. ACETAMINOPHEN [Concomitant]
     Dosage: UNK
  8. LIDODERM [Concomitant]
  9. AMLODIPINE [Concomitant]
  10. ZANTAC [Concomitant]
  11. LACTOBACILLUS [Concomitant]
  12. LORAZEPAM [Concomitant]
  13. XOPENEX HFA [Concomitant]
  14. EVISTA [Concomitant]
  15. IRON [Concomitant]
  16. IPRATROPIUM BROMIDE [Concomitant]
  17. TOBI [Suspect]
     Dosage: UNK
     Dates: start: 20120121
  18. EFFEXOR [Concomitant]
  19. TRAMADOL HCL [Concomitant]
     Dosage: UNK
  20. NYSTATIN [Concomitant]
  21. TOBI [Suspect]
     Dosage: 300 MG, BID
  22. MILK OF MAGNESIA TAB [Concomitant]
  23. FORADIL [Concomitant]
  24. COLACE [Concomitant]
  25. SONATA [Concomitant]

REACTIONS (6)
  - CARDIOVASCULAR DISORDER [None]
  - OXYGEN SATURATION ABNORMAL [None]
  - BRONCHOSPASM [None]
  - DYSPNOEA [None]
  - CHEST PAIN [None]
  - CHRONIC OBSTRUCTIVE PULMONARY DISEASE [None]
